FAERS Safety Report 9494283 (Version 4)
Quarter: 2014Q1

REPORT INFORMATION
  Report Type: Spontaneous
  Country: US (occurrence: None)
  Receive Date: 20130828
  Receipt Date: 20140304
  Transmission Date: 20141002
  Serious: Yes (Other)
  Sender: FDA-Public Use
  Company Number: 2013US002318

PATIENT
  Age: 37 Year
  Sex: Male
  Weight: 97 kg

DRUGS (14)
  1. PONATINIB [Suspect]
     Indication: CHRONIC MYELOID LEUKAEMIA
     Route: 048
     Dates: start: 20090923, end: 20101216
  2. ASPIRIN (ASPIRIN) [Concomitant]
  3. CLOPIDOGREL (CLOPIDOGREL) [Concomitant]
  4. LISINOPRIL (LISINOPRIL DIHYDRATE) [Concomitant]
  5. AMLODIPINE (AMLODIPINE) [Concomitant]
  6. TEKTURNA (ALISKIREN FUMARATE) [Concomitant]
  7. HYDROCHLOROTHIAZIDE (HYDROCHLOROTHIAZIDE) [Concomitant]
  8. ATORVASTATIN (ATORVASTATIN) [Concomitant]
  9. PEPCID (FAMOTIDINE) [Concomitant]
  10. CLINDAMYCIN (CLINDAMYCIN) [Concomitant]
  11. LANTUS (INSULIN GLARGINE) [Concomitant]
  12. HUMALOG (INSULIN GLARGINE) [Concomitant]
  13. OXYCONTIN (OXYCODONE HYDROCHLORIDE) [Concomitant]
  14. OXYCODONE (OXYCODONE) [Concomitant]

REACTIONS (25)
  - Peripheral arterial occlusive disease [None]
  - Coronary artery disease [None]
  - Gangrene [None]
  - Injury [None]
  - Poor peripheral circulation [None]
  - Myocardial ischaemia [None]
  - Myocardial infarction [None]
  - Hypertension [None]
  - Pleural effusion [None]
  - Acute myocardial infarction [None]
  - Gallbladder pain [None]
  - Pancreatitis [None]
  - Cholecystitis acute [None]
  - Limb injury [None]
  - Ingrowing nail [None]
  - Aortic valve sclerosis [None]
  - Left atrial dilatation [None]
  - Mitral valve incompetence [None]
  - Tricuspid valve incompetence [None]
  - Coronary artery stenosis [None]
  - Coronary artery occlusion [None]
  - Cellulitis [None]
  - Sciatica [None]
  - Post inflammatory pigmentation change [None]
  - Peripheral ischaemia [None]
